FAERS Safety Report 5467797-3 (Version None)
Quarter: 2007Q3

REPORT INFORMATION
  Report Type: 
  Country: None (occurrence: None)
  Receive Date: 20070814
  Receipt Date: 20070321
  Transmission Date: 20080115
  Serious: No
  Sender: FDA-Public Use
  Company Number: 200711115US

PATIENT
  Age: 39 Year
  Sex: Female

DRUGS (8)
  1. APIDRA [Suspect]
     Indication: TYPE 1 DIABETES MELLITUS
     Dosage: 21, AM; 15 PM; 20 DINNER U TID
     Dates: start: 20061201
  2. LANTUS [Suspect]
     Indication: TYPE 1 DIABETES MELLITUS
     Dosage: 75 U
     Dates: start: 20061201
  3. OPTICLIK [Suspect]
     Indication: TYPE 1 DIABETES MELLITUS
     Dates: start: 20061201
  4. ENALAPRIL MALEATE [Concomitant]
  5. PREDNISONE [Concomitant]
  6. ESCITALOPRAM OXALATE (LEXAPRO) [Concomitant]
  7. CELEBREX [Concomitant]
  8. FUROSEMIDE (LASIX /00032601/) [Concomitant]

REACTIONS (1)
  - WRONG DRUG ADMINISTERED [None]
